FAERS Safety Report 25510246 (Version 1)
Quarter: 2025Q3

REPORT INFORMATION
  Report Type: Spontaneous
  Country: US (occurrence: US)
  Receive Date: 20250703
  Receipt Date: 20250703
  Transmission Date: 20251021
  Serious: No
  Sender: RADIUS PHARM
  Company Number: US-RADIUS HEALTH INC.-2024US003078

PATIENT
  Age: 54 Year
  Sex: Female
  Weight: 64.399 kg

DRUGS (1)
  1. TYMLOS [Suspect]
     Active Substance: ABALOPARATIDE
     Indication: Osteoporosis
     Route: 058
     Dates: start: 20240424, end: 20240913

REACTIONS (6)
  - Nausea [Unknown]
  - Headache [Unknown]
  - Constipation [Recovering/Resolving]
  - Abdominal pain [Unknown]
  - Musculoskeletal discomfort [Unknown]
  - Intentional dose omission [Unknown]

NARRATIVE: CASE EVENT DATE: 20240502
